FAERS Safety Report 8377643-6 (Version None)
Quarter: 2012Q2

REPORT INFORMATION
  Report Type: 
  Country: None (occurrence: None)
  Receive Date: 20120522
  Receipt Date: 20120508
  Transmission Date: 20120825
  Serious: Yes (Other)
  Sender: FDA-Public Use
  Company Number: IT-WATSON-2012-08504

PATIENT
  Sex: Male

DRUGS (1)
  1. RISPERIDONE [Suspect]
     Indication: SCHIZOPHRENIA
     Dosage: 8 MG, DAILY
     Route: 048
     Dates: start: 20120409, end: 20120504

REACTIONS (2)
  - CONDITION AGGRAVATED [None]
  - NO THERAPEUTIC RESPONSE [None]
